FAERS Safety Report 14638245 (Version 1)
Quarter: 2018Q1

REPORT INFORMATION
  Report Type: Spontaneous
  Country: US (occurrence: US)
  Receive Date: 20180314
  Receipt Date: 20180314
  Transmission Date: 20180509
  Serious: Yes (Disabling)
  Sender: FDA-Public Use
  Company Number: None

PATIENT
  Age: 52 Year
  Sex: Female
  Weight: 85.05 kg

DRUGS (1)
  1. LIDOCAINE. [Suspect]
     Active Substance: LIDOCAINE
     Indication: POST HERPETIC NEURALGIA
     Dosage: TRANSDERMAL; 12 H ON 12 H OFF?
     Route: 062
     Dates: start: 20110601, end: 20180314

REACTIONS (3)
  - Hair growth abnormal [None]
  - Application site discolouration [None]
  - Application site reaction [None]

NARRATIVE: CASE EVENT DATE: 20180101
